FAERS Safety Report 4583709-9 (Version None)
Quarter: 2005Q1

REPORT INFORMATION
  Report Type: 
  Country: None (occurrence: None)
  Receive Date: 20050216
  Receipt Date: 20050208
  Transmission Date: 20050727
  Serious: Yes (Hospitalization)
  Sender: FDA-Public Use
  Company Number: IT-BRISTOL-MYERS SQUIBB COMPANY-12855177

PATIENT
  Sex: Female

DRUGS (1)
  1. PARAPLATIN [Suspect]

REACTIONS (2)
  - DYSPNOEA [None]
  - TACHYCARDIA [None]
